FAERS Safety Report 23326136 (Version 1)
Quarter: 2023Q4

REPORT INFORMATION
  Report Type: Spontaneous
  Country: DE (occurrence: DE)
  Receive Date: 20231221
  Receipt Date: 20231221
  Transmission Date: 20240110
  Serious: Yes (Hospitalization)
  Sender: FDA-Public Use
  Company Number: DE-ELI_LILLY_AND_COMPANY-DE202312008210

PATIENT
  Age: 72 Year
  Sex: Male
  Weight: 103 kg

DRUGS (2)
  1. TALTZ [Suspect]
     Active Substance: IXEKIZUMAB
     Indication: Psoriasis
     Dosage: UNK UNK, OTHER (EVERY 4 WEEKS)
     Route: 065
     Dates: start: 20230606
  2. VOLTAREN [Concomitant]
     Active Substance: DICLOFENAC SODIUM
     Indication: Product used for unknown indication
     Dosage: UNK UNK, DAILY
     Dates: start: 20230606

REACTIONS (2)
  - Arthralgia [Not Recovered/Not Resolved]
  - C-reactive protein increased [Unknown]
